FAERS Safety Report 17156660 (Version 2)
Quarter: 2025Q3

REPORT INFORMATION
  Report Type: Spontaneous
  Country: EU (occurrence: EU)
  Receive Date: 20191216
  Receipt Date: 20250705
  Transmission Date: 20251020
  Serious: Yes (Hospitalization, Other)
  Sender: AUROBINDO
  Company Number: EU-002147023-NVSC2019FR058884

PATIENT
  Age: 58 Year
  Sex: Female

DRUGS (3)
  1. DARUNAVIR [Interacting]
     Active Substance: DARUNAVIR
     Indication: Bipolar disorder
     Route: 065
  2. QUETIAPINE [Interacting]
     Active Substance: QUETIAPINE
     Indication: Bipolar disorder
     Dosage: 150 MILLIGRAM, ONCE A DAY
     Route: 065
  3. RITONAVIR [Interacting]
     Active Substance: RITONAVIR
     Indication: Bipolar disorder
     Route: 065

REACTIONS (6)
  - Syncope [Unknown]
  - Electrocardiogram QT prolonged [Unknown]
  - Psychomotor retardation [Unknown]
  - Drug interaction [Unknown]
  - Product use in unapproved indication [Unknown]
  - Overdose [Unknown]
